FAERS Safety Report 7490169-7 (Version None)
Quarter: 2011Q2

REPORT INFORMATION
  Report Type: 
  Country: None (occurrence: None)
  Receive Date: 20110519
  Receipt Date: 20110422
  Transmission Date: 20111010
  Serious: Yes (Hospitalization, Other)
  Sender: FDA-Public Use
  Company Number: US-BAYER-201038218NA

PATIENT
  Age: 26 Year
  Sex: Female
  Weight: 64 kg

DRUGS (9)
  1. YASMIN [Suspect]
     Indication: ACNE
     Dosage: UNK
     Route: 048
     Dates: start: 20020201, end: 20030101
  2. YASMIN [Suspect]
     Indication: CONTRACEPTION
  3. BEXTRA [Concomitant]
     Indication: ABDOMINAL PAIN
     Dates: start: 20031008
  4. YAZ [Suspect]
     Indication: PAIN
     Route: 048
  5. LEXAPRO [Concomitant]
  6. WELLBUTRIN SR [Concomitant]
     Dates: start: 20020201
  7. TRANXENE [Concomitant]
  8. LEXAPRO [Concomitant]
  9. COLACE [Concomitant]

REACTIONS (8)
  - HEPATIC ADENOMA [None]
  - HYPOVOLAEMIC SHOCK [None]
  - PROCEDURAL PAIN [None]
  - ABDOMINAL PAIN [None]
  - MENTAL DISORDER [None]
  - CHOLECYSTITIS CHRONIC [None]
  - TUMOUR RUPTURE [None]
  - HEPATIC RUPTURE [None]
